FAERS Safety Report 5545822-9 (Version None)
Quarter: 2007Q4

REPORT INFORMATION
  Report Type: 
  Country: None (occurrence: None)
  Receive Date: 20071211
  Receipt Date: 20071009
  Transmission Date: 20080405
  Serious: No
  Sender: FDA-Public Use
  Company Number: US-ASTRAZENECA-2007UW19975

PATIENT
  Age: 76 Year
  Sex: Female
  Weight: 136.1 kg

DRUGS (8)
  1. SYMBICORT [Suspect]
     Indication: ASTHMA
     Dosage: 160/4.5 UG 2 PUFFS
     Route: 055
     Dates: start: 20070820
  2. SYNTHROID [Concomitant]
  3. HUMULIN N [Concomitant]
  4. XOPENEX [Concomitant]
  5. REGULAR INSULIN [Concomitant]
  6. MEDROL [Concomitant]
  7. EXCEDRIN (MIGRAINE) [Concomitant]
  8. NITRO SLOCAP [Concomitant]

REACTIONS (2)
  - DIZZINESS [None]
  - RHINORRHOEA [None]
